FAERS Safety Report 4498366-X (Version None)
Quarter: 2004Q4

REPORT INFORMATION
  Report Type: 
  Country: None (occurrence: None)
  Receive Date: 20041105
  Receipt Date: 20041025
  Transmission Date: 20050328
  Serious: Yes (Death, Hospitalization)
  Sender: FDA-Public Use
  Company Number: 140537USA

PATIENT
  Age: 51 Year
  Sex: Female

DRUGS (3)
  1. PIMOZIDE [Suspect]
     Dosage: 4 MILLIGRAM, ORAL
     Route: 048
     Dates: start: 19990101
  2. FLUOXETINE HYDROCHLORIDE [Suspect]
  3. LITHIUM CARBONATE [Concomitant]

REACTIONS (5)
  - ANXIETY [None]
  - DRUG LEVEL DECREASED [None]
  - LOSS OF CONSCIOUSNESS [None]
  - SUDDEN CARDIAC DEATH [None]
  - THERAPY NON-RESPONDER [None]
